FAERS Safety Report 8190398-3 (Version None)
Quarter: 2012Q1

REPORT INFORMATION
  Report Type: 
  Country: None (occurrence: None)
  Receive Date: 20120221
  Receipt Date: 20111216
  Transmission Date: 20120608
  Serious: No
  Sender: FDA-Public Use
  Company Number: 1000026413

PATIENT
  Age: 56 Year
  Sex: Female

DRUGS (3)
  1. CRESTOR [Concomitant]
  2. ASPIRIN [Concomitant]
  3. VIIBRYD [Suspect]
     Indication: DEPRESSION
     Dosage: 5 MG (5 MG, 1 IN 1 D), ORAL
     Route: 048
     Dates: start: 20111215

REACTIONS (6)
  - FATIGUE [None]
  - ABDOMINAL PAIN UPPER [None]
  - SOMNOLENCE [None]
  - DIZZINESS [None]
  - PARAESTHESIA ORAL [None]
  - NAUSEA [None]
